FAERS Safety Report 9364521 (Version 2)
Quarter: 2013Q3

REPORT INFORMATION
  Report Type: Report from Study
  Country: US (occurrence: US)
  Receive Date: 20130624
  Receipt Date: 20130819
  Transmission Date: 20140515
  Serious: Yes (Hospitalization)
  Sender: FDA-Public Use
  Company Number: US-PFIZER INC-2013183780

PATIENT
  Age: 29 Year
  Sex: Male
  Weight: 116.1 kg

DRUGS (39)
  1. CRIZOTINIB [Suspect]
     Indication: NON-SMALL CELL LUNG CANCER
     Dosage: 250 MG, TWICE DAILY
     Route: 048
     Dates: start: 20110407
  2. DEXAMETHASONE SODIUM PHOSPHATE [Suspect]
     Indication: PROPHYLAXIS
     Dosage: FOR SEIZURE PROPHYLAXIS
     Dates: start: 20110203, end: 20110620
  3. DEXAMETHASONE SODIUM PHOSPHATE [Suspect]
     Indication: METASTASES TO CENTRAL NERVOUS SYSTEM
     Dosage: 1 MG, DOSAGE INCREASED, FOR SEIZURE PROPHYLAXIS
     Dates: start: 20110624, end: 20120501
  4. DEXAMETHASONE SODIUM PHOSPHATE [Suspect]
     Dosage: 4 MG, TID FOR BRAIN METS
     Route: 048
     Dates: start: 20120501, end: 20120823
  5. DEXAMETHASONE SODIUM PHOSPHATE [Suspect]
     Dosage: 4 MG, TID FOR BRAIN METS
     Route: 048
     Dates: start: 20120824
  6. WARFARIN [Concomitant]
     Indication: PULMONARY EMBOLISM
     Dosage: UNK
     Dates: start: 201010
  7. WARFARIN [Concomitant]
     Indication: EMBOLISM VENOUS
  8. MORPHINE SULFATE [Concomitant]
     Indication: BONE PAIN
     Dosage: UNK
     Dates: start: 201010
  9. VICODIN [Concomitant]
     Indication: BONE PAIN
     Dosage: UNK
     Dates: start: 201010
  10. CETIRIZINE [Concomitant]
     Indication: SINUS CONGESTION
     Dosage: UNK
     Dates: start: 201010
  11. DOCUSATE SODIUM\SENNOSIDES [Concomitant]
     Indication: CONSTIPATION
     Dosage: UNK
     Dates: start: 201010
  12. OMEPRAZOLE [Concomitant]
     Indication: DYSPEPSIA
     Dosage: UNK
     Dates: start: 201010
  13. CYANOCOBALAMIN [Concomitant]
     Indication: SUPPLEMENTATION THERAPY
     Dosage: UNK
     Dates: start: 20110128, end: 20110310
  14. CYANOCOBALAMIN [Concomitant]
     Dosage: UNK
     Dates: start: 20120717, end: 20120717
  15. CYANOCOBALAMIN [Concomitant]
     Dosage: UNK
     Dates: start: 20120802, end: 20120802
  16. FOLIC ACID [Concomitant]
     Indication: VITAMIN SUPPLEMENTATION
     Dosage: UNK
     Dates: start: 20110128
  17. TESTOSTERONE CYPIONATE [Concomitant]
     Indication: ANDROGEN DEFICIENCY
     Dosage: UNK
     Dates: start: 20110203, end: 20110524
  18. TESTOSTERONE CYPIONATE [Concomitant]
     Dosage: UNK
     Dates: start: 20120802, end: 20120802
  19. KEPPRA [Concomitant]
     Indication: PROPHYLAXIS
     Dosage: UNK
     Dates: start: 20110316, end: 20110624
  20. KEPPRA [Concomitant]
     Dosage: DOSAGE INCREASED
     Dates: start: 20110624
  21. TESTOSTERONE [Concomitant]
     Indication: ANDROGEN DEFICIENCY
     Dosage: UNK
     Dates: start: 20110712, end: 20110908
  22. TESTOSTERONE [Concomitant]
     Dosage: UNK
     Dates: start: 20120201, end: 20120201
  23. AUGMENTIN [Concomitant]
     Indication: UPPER RESPIRATORY TRACT INFECTION
     Dosage: UNK
     Dates: start: 20110420, end: 20110427
  24. LOTRISONE [Concomitant]
     Indication: TINEA INFECTION
     Dosage: UNK
     Dates: start: 20110510
  25. FUROSEMIDE [Concomitant]
     Indication: OEDEMA PERIPHERAL
     Dosage: PRN
     Dates: start: 20110510
  26. MYCELEX TROCHE [Concomitant]
     Indication: ORAL CANDIDIASIS
     Dosage: UNK
     Dates: start: 20110519, end: 20110528
  27. GREEN GODDESS SUPPLEMENT (NFI) [Concomitant]
     Indication: SUPPLEMENTATION THERAPY
     Dosage: UNK
     Dates: start: 20110128
  28. CYMBALTA [Concomitant]
     Indication: DEPRESSION
     Dosage: UNK
     Dates: start: 20110820, end: 20120621
  29. CYMBALTA [Concomitant]
     Indication: ANXIETY
  30. CYMBALTA [Concomitant]
     Indication: NEUROPATHY PERIPHERAL
  31. MELATONIN [Concomitant]
     Indication: INSOMNIA
     Dosage: UNK
     Dates: start: 20110101
  32. KEFLEX [Concomitant]
     Indication: CELLULITIS
     Dosage: UNK
     Dates: start: 20120605, end: 20120615
  33. CLINDAMYCIN [Concomitant]
     Indication: CELLULITIS
     Dosage: UNK
     Dates: start: 20120614, end: 20120704
  34. BACTRIM [Concomitant]
     Indication: CELLULITIS
     Dosage: UNK
     Dates: start: 20120620, end: 20120704
  35. CORTOMYCIN [Concomitant]
     Indication: CERUMEN IMPACTION
     Dosage: UNK
     Dates: start: 20120712, end: 20120719
  36. CORTISPORIN SOLUTION [Concomitant]
     Indication: CERUMEN IMPACTION
     Dosage: UNK
     Dates: start: 20120813, end: 20120823
  37. VANCOMYCIN [Concomitant]
     Indication: CELLULITIS
     Dosage: UNK
     Dates: start: 20120627, end: 20120717
  38. INVANZ [Concomitant]
     Indication: CELLULITIS
     Dosage: UNK
     Dates: start: 20120815, end: 20120828
  39. SALICYLIC ACID [Concomitant]
     Indication: ECCHYMOSIS
     Dosage: UNK
     Dates: start: 20120802

REACTIONS (1)
  - Cellulitis [Recovering/Resolving]
